FAERS Safety Report 18969663 (Version 1)
Quarter: 2021Q1

REPORT INFORMATION
  Report Type: Spontaneous
  Country: AT (occurrence: AT)
  Receive Date: 20210304
  Receipt Date: 20210304
  Transmission Date: 20210420
  Serious: Yes (Death, Hospitalization, Other)
  Sender: FDA-Public Use
  Company Number: AT-AMGEN-AUTSP2021031165

PATIENT

DRUGS (2)
  1. NEUPOGEN [Suspect]
     Active Substance: FILGRASTIM
     Indication: HAEMATOPOIETIC STEM CELL MOBILISATION
     Dosage: UNK
     Route: 065
  2. DUTOGLIPTIN [Concomitant]
     Active Substance: DUTOGLIPTIN
     Indication: ACUTE MYOCARDIAL INFARCTION
     Dosage: UNK
     Route: 058

REACTIONS (7)
  - Nausea [Unknown]
  - Acute myocardial infarction [Unknown]
  - Hepatic enzyme increased [Unknown]
  - Syncope [Unknown]
  - Skin mass [Unknown]
  - Adverse event [Unknown]
  - Pneumonia [Fatal]
